FAERS Safety Report 15483905 (Version 1)
Quarter: 2018Q4

REPORT INFORMATION
  Report Type: Spontaneous
  Country: FR (occurrence: FR)
  Receive Date: 20181010
  Receipt Date: 20181010
  Transmission Date: 20190205
  Serious: Yes (Hospitalization)
  Sender: FDA-Public Use
  Company Number: FR-ASTRAZENECA-2018SF29587

PATIENT
  Age: 43 Year
  Sex: Male

DRUGS (3)
  1. PROZAC [Suspect]
     Active Substance: FLUOXETINE HYDROCHLORIDE
     Indication: OBSESSIVE-COMPULSIVE DISORDER
     Route: 048
     Dates: start: 20180206, end: 20180829
  2. XEROQUEL LP [Suspect]
     Active Substance: QUETIAPINE FUMARATE
     Indication: OBSESSIVE-COMPULSIVE DISORDER
     Route: 048
     Dates: start: 20180206
  3. BROMAZEPAM [Concomitant]
     Active Substance: BROMAZEPAM
     Indication: OBSESSIVE-COMPULSIVE DISORDER
     Route: 048
     Dates: start: 20180206

REACTIONS (2)
  - Pain in extremity [Recovering/Resolving]
  - Spontaneous haematoma [Recovering/Resolving]

NARRATIVE: CASE EVENT DATE: 20180810
